FAERS Safety Report 22679283 (Version 3)
Quarter: 2024Q2

REPORT INFORMATION
  Report Type: Spontaneous
  Country: BR (occurrence: BR)
  Receive Date: 20230707
  Receipt Date: 20240403
  Transmission Date: 20240716
  Serious: Yes (Other)
  Sender: FDA-Public Use
  Company Number: BR-009507513-2307BRA001307

PATIENT
  Age: 48 Year
  Sex: Male

DRUGS (2)
  1. PEMBROLIZUMAB [Suspect]
     Active Substance: PEMBROLIZUMAB
     Indication: Oesophageal adenocarcinoma
     Dosage: 8 CYCLES PERFORMED
  2. FLUOROURACIL\LEUCOVORIN CALCIUM\OXALIPLATIN [Suspect]
     Active Substance: FLUOROURACIL\LEUCOVORIN CALCIUM\OXALIPLATIN
     Indication: Oesophageal adenocarcinoma

REACTIONS (5)
  - Neuropathy peripheral [Unknown]
  - Liver injury [Unknown]
  - Renal cyst [Unknown]
  - Lymphadenopathy [Unknown]
  - Anaemia [Unknown]
